FAERS Safety Report 8399712-7 (Version None)
Quarter: 2012Q2

REPORT INFORMATION
  Report Type: 
  Country: None (occurrence: None)
  Receive Date: 20120531
  Receipt Date: 20120522
  Transmission Date: 20120825
  Serious: No
  Sender: FDA-Public Use
  Company Number: US-B.I. PHARMACEUTICALS,INC./RIDGEFIELD-2012-BP-03306BP

PATIENT
  Sex: Female
  Weight: 70.76 kg

DRUGS (11)
  1. ACTONEL [Concomitant]
     Indication: OSTEOARTHRITIS
     Route: 048
     Dates: start: 20070101
  2. CALCIUM [Concomitant]
     Indication: SUPPLEMENTATION THERAPY
     Route: 048
     Dates: start: 20070101
  3. VITAMIN D [Concomitant]
     Indication: SUPPLEMENTATION THERAPY
     Route: 048
     Dates: start: 20070101
  4. SIMVASTATIN [Concomitant]
     Indication: BLOOD CHOLESTEROL INCREASED
     Dosage: 20 MG
     Route: 048
     Dates: start: 20090101
  5. STOOL SOFTENER [Concomitant]
     Indication: CONSTIPATION
     Route: 048
     Dates: start: 20110201
  6. MELOXICAM [Concomitant]
     Indication: SCLERODERMA
     Dosage: 15 MG
     Route: 048
     Dates: start: 20070101
  7. MULTIVITAMIN [Concomitant]
     Route: 048
     Dates: start: 20110201
  8. SPIRIVA [Suspect]
     Indication: CHRONIC OBSTRUCTIVE PULMONARY DISEASE
     Dosage: 18 MCG
     Route: 055
     Dates: start: 20111101, end: 20120201
  9. SPIRIVA [Suspect]
     Dosage: 18 MCG
     Route: 055
     Dates: start: 20120218
  10. ASPIRIN [Concomitant]
     Indication: PROPHYLAXIS
     Dosage: 81 MG
     Route: 048
     Dates: start: 20090101
  11. CARDIA XT [Concomitant]
     Indication: HYPERTENSION
     Dosage: 240 MG
     Route: 048
     Dates: start: 20090101

REACTIONS (7)
  - SINUSITIS [None]
  - CHILLS [None]
  - MYALGIA [None]
  - SNEEZING [None]
  - DRY MOUTH [None]
  - RHINORRHOEA [None]
  - EAR INFECTION [None]
